FAERS Safety Report 8880750 (Version 7)
Quarter: 2013Q1

REPORT INFORMATION
  Report Type: Report from Study
  Country: IL (occurrence: IL)
  Receive Date: 20121101
  Receipt Date: 20130226
  Transmission Date: 20140127
  Serious: Yes (Hospitalization)
  Sender: FDA-Public Use
  Company Number: IL-BAYER-2012-062133

PATIENT
  Age: 61 Year
  Sex: Female
  Weight: 65 kg

DRUGS (7)
  1. REGORAFENIB [Suspect]
     Indication: COLORECTAL CANCER METASTATIC
     Dosage: 160 MG DAILY
     Route: 048
     Dates: start: 20120618, end: 20120620
  2. REGORAFENIB [Suspect]
     Indication: COLORECTAL CANCER METASTATIC
     Dosage: 160 MG DAILY
     Route: 048
     Dates: start: 20120625, end: 20120701
  3. REGORAFENIB [Suspect]
     Indication: COLORECTAL CANCER METASTATIC
     Dosage: 160 MG DAILY
     Route: 048
     Dates: start: 20120717, end: 20120805
  4. REGORAFENIB [Suspect]
     Indication: COLORECTAL CANCER METASTATIC
  5. REGORAFENIB [Suspect]
     Indication: COLORECTAL CANCER METASTATIC
     Dosage: UNK
  6. PERCOCET [Concomitant]
     Indication: ABDOMINAL PAIN
     Dosage: 5 MG
     Dates: start: 20120618
  7. ONDANSETRON [Concomitant]
     Indication: NAUSEA
     Dosage: 20 MG
     Route: 048
     Dates: start: 20120618

REACTIONS (3)
  - Small intestinal obstruction [Recovered/Resolved]
  - Pericarditis [Recovered/Resolved]
  - Small intestinal obstruction [Recovered/Resolved]
